FAERS Safety Report 7230403-1 (Version None)
Quarter: 2011Q1

REPORT INFORMATION
  Report Type: 
  Country: None (occurrence: None)
  Receive Date: 20110118
  Receipt Date: 20110106
  Transmission Date: 20110831
  Serious: Yes (Death, Disabling)
  Sender: FDA-Public Use
  Company Number: US-CELGENEUS-163-21880-10101920

PATIENT
  Sex: Male

DRUGS (2)
  1. REVLIMID [Suspect]
     Indication: MULTIPLE MYELOMA
     Route: 048
     Dates: start: 20061001
  2. REVLIMID [Suspect]
     Route: 048
     Dates: start: 20081101, end: 20090701

REACTIONS (2)
  - MULTIPLE MYELOMA [None]
  - HAEMORRHAGE [None]
